FAERS Safety Report 7230577-2 (Version None)
Quarter: 2011Q1

REPORT INFORMATION
  Report Type: 
  Country: None (occurrence: None)
  Receive Date: 20110118
  Receipt Date: 20110107
  Transmission Date: 20110831
  Serious: Yes (Hospitalization, Other)
  Sender: FDA-Public Use
  Company Number: PHHY2011FI01433

PATIENT
  Sex: Male

DRUGS (5)
  1. LESCOL [Suspect]
     Dosage: 80 MG, 1TABLET/DAY
     Route: 048
     Dates: start: 20030101
  2. LESCOL [Suspect]
     Dosage: 1 DF, EVERY SECOND MORNING
     Route: 048
     Dates: start: 20090101
  3. PRIMASPAN [Concomitant]
     Dosage: 100 MG, 1TABLET EVERY MORNING
     Route: 048
     Dates: start: 20101120
  4. ZYPREXA [Concomitant]
     Dosage: 10 MG, EVERY MORNING
     Route: 048
     Dates: start: 20050101
  5. IPSATOL [Concomitant]
     Indication: MUSCULOSKELETAL STIFFNESS
     Dosage: 1 DF, EVERY MORNING
     Route: 048

REACTIONS (10)
  - MUSCLE SPASMS [None]
  - PRURITUS [None]
  - CHEST PAIN [None]
  - FATIGUE [None]
  - ANGINA PECTORIS [None]
  - HAEMATOCHEZIA [None]
  - CONSTIPATION [None]
  - SYNCOPE [None]
  - HYPOAESTHESIA [None]
  - ARRHYTHMIA [None]
